FAERS Safety Report 9256248 (Version 1)
Quarter: 2013Q2

REPORT INFORMATION
  Report Type: Spontaneous
  Country: US (occurrence: US)
  Receive Date: 20130425
  Receipt Date: 20130425
  Transmission Date: 20140414
  Serious: No
  Sender: FDA-Public Use
  Company Number: US-AMGEN-USASP2012049851

PATIENT
  Age: 55 Year
  Sex: Female
  Weight: 88 kg

DRUGS (3)
  1. NEULASTA [Suspect]
     Indication: CHEMOTHERAPY
     Dosage: 6 MG, Q3WK
     Route: 058
     Dates: start: 20120329, end: 20120712
  2. TAXOTERE [Concomitant]
     Indication: BREAST CANCER
     Dosage: 148 MG, Q3WK
     Route: 042
     Dates: start: 20120328, end: 20120711
  3. CYTOXAN [Concomitant]
     Indication: BREAST CANCER
     Dosage: 1182 MG, Q3WK
     Route: 042
     Dates: start: 20120328, end: 20120711

REACTIONS (8)
  - Pain [Recovered/Resolved]
  - Influenza [Not Recovered/Not Resolved]
  - Gait disturbance [Not Recovered/Not Resolved]
  - Arthralgia [Recovered/Resolved]
  - Pain in extremity [Recovered/Resolved]
  - Fatigue [Recovering/Resolving]
  - Myalgia [Not Recovered/Not Resolved]
  - Musculoskeletal pain [Recovered/Resolved]
